FAERS Safety Report 8133986-2 (Version None)
Quarter: 2012Q1

REPORT INFORMATION
  Report Type: 
  Country: None (occurrence: None)
  Receive Date: 20120213
  Receipt Date: 20120208
  Transmission Date: 20120608
  Serious: Yes (Other)
  Sender: FDA-Public Use
  Company Number: US-ASTRAZENECA-2012SE08546

PATIENT
  Sex: Male

DRUGS (2)
  1. TOPROL-XL [Suspect]
     Dosage: GENERIC
     Route: 048
  2. TOPROL-XL [Suspect]
     Route: 048

REACTIONS (1)
  - ATRIAL FIBRILLATION [None]
